FAERS Safety Report 5030051-8 (Version None)
Quarter: 2006Q2

REPORT INFORMATION
  Report Type: 
  Country: None (occurrence: None)
  Receive Date: 20060614
  Receipt Date: 20060602
  Transmission Date: 20061013
  Serious: Yes (Hospitalization)
  Sender: FDA-Public Use
  Company Number: 2006072923

PATIENT
  Age: 88 Year
  Sex: Female
  Weight: 57.5 kg

DRUGS (2)
  1. EXEMESTANE [Suspect]
     Indication: BREAST CANCER
     Dosage: 25 MG 25 MG, 1 IN 1 D), ORAL
     Route: 048
  2. INSULIN [Concomitant]

REACTIONS (11)
  - B-CELL LYMPHOMA [None]
  - BLOOD GLUCOSE INCREASED [None]
  - BLOOD PRESSURE INCREASED [None]
  - CARDIAC MURMUR [None]
  - FATIGUE [None]
  - GASTRIC ULCER HELICOBACTER [None]
  - HAEMOGLOBIN DECREASED [None]
  - NAUSEA [None]
  - PALLOR [None]
  - UPPER GASTROINTESTINAL HAEMORRHAGE [None]
  - VOMITING [None]
